FAERS Safety Report 24445059 (Version 2)
Quarter: 2024Q4

REPORT INFORMATION
  Report Type: Report from Study
  Country: US (occurrence: US)
  Receive Date: 20241016
  Receipt Date: 20241106
  Transmission Date: 20250115
  Serious: Yes (Hospitalization, Other)
  Sender: GILEAD
  Company Number: US-GILEAD-2024-0690921

PATIENT
  Age: 53 Year
  Sex: Female

DRUGS (6)
  1. AZTREONAM LYSINE [Suspect]
     Active Substance: AZTREONAM LYSINE
     Indication: Cystic fibrosis lung
     Dosage: 75MG INHALE 1 VIAL VIA NEBULIZER 3X DAILY FOR 28 DAYS THEN 28 DAYS OFF
     Route: 055
     Dates: start: 20240416
  2. AZTREONAM LYSINE [Suspect]
     Active Substance: AZTREONAM LYSINE
     Dosage: 75MG INHALE 1 VIAL VIA NEBULIZER 3X DAILY FOR 28 DAYS THEN 28 DAYS OFF
     Route: 055
     Dates: start: 20240415
  3. TRIKAFTA [Concomitant]
     Active Substance: ELEXACAFTOR\IVACAFTOR\TEZACAFTOR
  4. AZITHROMYCIN [Concomitant]
     Active Substance: AZITHROMYCIN
  5. PULMOZYME [Concomitant]
     Active Substance: DORNASE ALFA
  6. SYMBICORT [Concomitant]
     Active Substance: BUDESONIDE\FORMOTEROL FUMARATE DIHYDRATE

REACTIONS (5)
  - Cystic fibrosis respiratory infection suppression [Not Recovered/Not Resolved]
  - Rhinovirus infection [Unknown]
  - Sleep disorder [Unknown]
  - Loss of personal independence in daily activities [Unknown]
  - Social problem [Unknown]

NARRATIVE: CASE EVENT DATE: 20240930
